FAERS Safety Report 10875248 (Version 3)
Quarter: 2015Q1

REPORT INFORMATION
  Report Type: Spontaneous
  Country: BR (occurrence: BR)
  Receive Date: 20150227
  Receipt Date: 20150311
  Transmission Date: 20150721
  Serious: Yes (Death)
  Sender: FDA-Public Use
  Company Number: BR-BIOMARINAP-BR-2015-105665

PATIENT
  Age: 16 Year
  Sex: Male
  Weight: 24 kg

DRUGS (3)
  1. NAGLAZYME [Suspect]
     Active Substance: GALSULFASE
     Indication: MUCOPOLYSACCHARIDOSIS VI
     Dosage: 20 MG, QW
     Route: 042
     Dates: start: 20080918
  2. DIPYRONE [Concomitant]
     Active Substance: DIPYRONE
     Indication: PRODUCT USED FOR UNKNOWN INDICATION
     Dosage: 20 GTT, UNK
  3. POLARAMINE [Concomitant]
     Active Substance: DEXCHLORPHENIRAMINE MALEATE
     Indication: PRODUCT USED FOR UNKNOWN INDICATION
     Dosage: 5 ML, UNK

REACTIONS (4)
  - Headache [Unknown]
  - Hydrocephalus [Fatal]
  - Bronchopneumonia [Unknown]
  - Brain oedema [Unknown]

NARRATIVE: CASE EVENT DATE: 20150226
